FAERS Safety Report 16304602 (Version 1)
Quarter: 2019Q2

REPORT INFORMATION
  Report Type: Spontaneous
  Country: US (occurrence: US)
  Receive Date: 20190510
  Receipt Date: 20190510
  Transmission Date: 20190711
  Serious: Yes (Life-Threatening, Hospitalization, Other)
  Sender: FDA-Public Use
  Company Number: None

PATIENT
  Age: 76 Year
  Sex: Female
  Weight: 56.25 kg

DRUGS (3)
  1. LOSARTAN POTASSIUM. [Suspect]
     Active Substance: LOSARTAN POTASSIUM
     Indication: HYPERTENSION
     Dosage: ?          QUANTITY:1 TABLET(S);?
     Route: 048
  2. VIT B [Concomitant]
     Active Substance: VITAMIN B
  3. D [Concomitant]

REACTIONS (3)
  - Blood glucose increased [None]
  - Feeding disorder [None]
  - Dyspepsia [None]

NARRATIVE: CASE EVENT DATE: 20190312
